FAERS Safety Report 4996090-8 (Version None)
Quarter: 2006Q2

REPORT INFORMATION
  Report Type: 
  Country: None (occurrence: None)
  Receive Date: 20060508
  Receipt Date: 20060428
  Transmission Date: 20061013
  Serious: Yes (Hospitalization, Other)
  Sender: FDA-Public Use
  Company Number: US-MERCK-0605USA00648

PATIENT
  Age: 86 Year
  Sex: Female
  Weight: 45 kg

DRUGS (1)
  1. VIOXX [Suspect]
     Route: 048
     Dates: end: 20040901

REACTIONS (2)
  - EMOTIONAL DISORDER [None]
  - MYOCARDIAL INFARCTION [None]
